FAERS Safety Report 15324782 (Version 1)
Quarter: 2018Q3

REPORT INFORMATION
  Report Type: Spontaneous
  Country: US (occurrence: US)
  Receive Date: 20180828
  Receipt Date: 20180828
  Transmission Date: 20181010
  Serious: No
  Sender: FDA-Public Use
  Company Number: US-TEVA-2018-US-949249

PATIENT
  Sex: Female

DRUGS (1)
  1. MEFLOQUINE HYDROCHLORIDE. [Suspect]
     Active Substance: MEFLOQUINE HYDROCHLORIDE
     Indication: MALARIA PROPHYLAXIS
     Route: 065
     Dates: start: 20180821

REACTIONS (7)
  - Decreased appetite [Unknown]
  - Anxiety [Unknown]
  - Abdominal distension [Unknown]
  - Poor quality sleep [Unknown]
  - Nightmare [Unknown]
  - Tinnitus [Unknown]
  - Depressed mood [Unknown]

NARRATIVE: CASE EVENT DATE: 20180821
